FAERS Safety Report 7831918-5 (Version None)
Quarter: 2011Q4

REPORT INFORMATION
  Report Type: 
  Country: None (occurrence: None)
  Receive Date: 20111021
  Receipt Date: 20111019
  Transmission Date: 20120403
  Serious: Yes (Hospitalization, Other)
  Sender: FDA-Public Use
  Company Number: US-MERCK-1108USA01572

PATIENT
  Age: 70 Year
  Sex: Female

DRUGS (4)
  1. PREDNISONE [Concomitant]
     Route: 048
  2. ESTROGENS (UNSPECIFIED) [Concomitant]
     Route: 048
     Dates: start: 19670101
  3. FOSAMAX [Suspect]
     Indication: OSTEOPOROSIS
     Route: 048
     Dates: start: 19930101, end: 20100101
  4. LANTUS [Concomitant]
     Indication: DIABETES MELLITUS
     Route: 051
     Dates: start: 19900101

REACTIONS (25)
  - BRONCHITIS CHRONIC [None]
  - DECUBITUS ULCER [None]
  - DEVICE FAILURE [None]
  - PULMONARY EMBOLISM [None]
  - SJOGREN'S SYNDROME [None]
  - ARTHRALGIA [None]
  - STAPHYLOCOCCAL INFECTION [None]
  - HYPERCHOLESTEROLAEMIA [None]
  - RHINITIS ALLERGIC [None]
  - FRACTURE NONUNION [None]
  - FEMUR FRACTURE [None]
  - SQUAMOUS CELL CARCINOMA [None]
  - TOOTH DISORDER [None]
  - FALL [None]
  - MYOCARDIAL INFARCTION [None]
  - NOSOCOMIAL INFECTION [None]
  - WEIGHT DECREASED [None]
  - STARVATION [None]
  - CELLULITIS [None]
  - MALIGNANT MELANOMA [None]
  - SUBCUTANEOUS ABSCESS [None]
  - POLYARTHRITIS [None]
  - PROTEIN TOTAL DECREASED [None]
  - HYPOTHYROIDISM [None]
  - BONE DISORDER [None]
